FAERS Safety Report 23630160 (Version 1)
Quarter: 2024Q1

REPORT INFORMATION
  Report Type: Spontaneous
  Country: US (occurrence: US)
  Receive Date: 20240314
  Receipt Date: 20240314
  Transmission Date: 20240410
  Serious: No
  Sender: FDA-Public Use
  Company Number: US-TARO PHARMACEUTICALS USA INC.-2024TAR00011

PATIENT

DRUGS (1)
  1. TRETINOIN [Suspect]
     Active Substance: TRETINOIN
     Indication: Cyst
     Dosage: UNK, TO AFFECTED AREA, 2 TIMES PER WEEK
     Route: 061
     Dates: start: 202311

REACTIONS (2)
  - Skin exfoliation [Not Recovered/Not Resolved]
  - Product use in unapproved indication [Unknown]
